FAERS Safety Report 6076638-5 (Version None)
Quarter: 2009Q1

REPORT INFORMATION
  Report Type: 
  Country: None (occurrence: None)
  Receive Date: 20090212
  Receipt Date: 20090212
  Transmission Date: 20090719
  Serious: No
  Sender: FDA-Public Use
  Company Number: None

PATIENT
  Age: 77 Year
  Sex: Male
  Weight: 103.95 kg

DRUGS (2)
  1. VANCOMYCIN [Suspect]
     Dates: start: 20071130, end: 20071207
  2. PIPERACILLIN AND TAZOBACTAM [Suspect]
     Dosage: 225 GM TID IV
     Route: 042
     Dates: start: 20071130, end: 20071207

REACTIONS (1)
  - THROMBOCYTOPENIA [None]
